FAERS Safety Report 8562981 (Version 3)
Quarter: 2013Q4

REPORT INFORMATION
  Report Type: Spontaneous
  Country: US (occurrence: US)
  Receive Date: 20120515
  Receipt Date: 20131206
  Transmission Date: 20140711
  Serious: Yes (Hospitalization, Other)
  Sender: FDA-Public Use
  Company Number: US-BAYER-2012-046664

PATIENT
  Age: 29 Year
  Sex: Female
  Weight: 108.84 kg

DRUGS (21)
  1. YAZ [Suspect]
     Dosage: UNK
     Dates: start: 2008, end: 2011
  2. YASMIN [Suspect]
     Dosage: UNK
     Dates: start: 2008, end: 2011
  3. OCELLA [Suspect]
     Dosage: UNK
     Dates: start: 2008, end: 2011
  4. PROPOXYPHENE HCL AND ACETAMINOPHEN [Concomitant]
     Dosage: 50-325MG
  5. OXYCODONE HYDROCHLORIDE [Concomitant]
     Dosage: 10 MG, UNK
  6. HYDROXYZINE [Concomitant]
     Dosage: 50 MG, UNK
  7. LORAZEPAM [Concomitant]
     Dosage: 1 MG, UNK
  8. AMOXICILLIN TRIHYDRATE W/CLAVULANTE POTASSIUM [Concomitant]
     Dosage: 875-125MG
  9. CYCLOBENZAPRINE [Concomitant]
     Dosage: 10 MG, UNK
  10. AMITRIPTYLINE HYDROCHLORIDE [Concomitant]
     Dosage: 25 MG, UNK
  11. SEROQUEL [Concomitant]
     Dosage: 300 MG, UNK
  12. DIVALPROEX SODIUM [Concomitant]
     Dosage: 500 MG, UNK
  13. CITALOPRAM HYDROBROMIDE [Concomitant]
     Dosage: 40 MG, UNK
  14. GABAPENTIN [Concomitant]
     Dosage: 600 MG, UNK
  15. OXYCODONE/APAP [Concomitant]
     Dosage: EVERY 4 HOURS PRN;
  16. PERCOCET [Concomitant]
     Indication: PAIN
     Dosage: EVERY 4 HOURS PRN;
     Route: 048
  17. CLONAZEPAM [Concomitant]
     Dosage: 1 MG, TID
     Route: 048
  18. PREDNISONE [Concomitant]
     Dosage: 20 MG, UNK
     Route: 048
  19. ALBUTEROL [Concomitant]
  20. VENTOLIN [Concomitant]
     Dosage: 2.5 MG, UNK
     Route: 045
  21. FLUTICASONE PROPIONATE [Concomitant]

REACTIONS (10)
  - Gallbladder injury [None]
  - Thyroidectomy [None]
  - Cholecystitis chronic [None]
  - Convulsion [None]
  - Anxiety [None]
  - Pain [None]
  - Injury [None]
  - General physical health deterioration [None]
  - Emotional distress [None]
  - Mental disorder [None]
